FAERS Safety Report 17846870 (Version 3)
Quarter: 2020Q3

REPORT INFORMATION
  Report Type: Spontaneous
  Country: US (occurrence: US)
  Receive Date: 20200601
  Receipt Date: 20200909
  Transmission Date: 20201103
  Serious: No
  Sender: FDA-Public Use
  Company Number: US-GLAXOSMITHKLINE-US2020AMR090984

PATIENT
  Sex: Female

DRUGS (3)
  1. ZEJULA [Suspect]
     Active Substance: NIRAPARIB
     Dosage: 300 MG, QD
     Dates: start: 20200516
  2. ZEJULA [Suspect]
     Active Substance: NIRAPARIB
     Dosage: 300 MG, QD
     Dates: start: 20200516
  3. ZEJULA [Suspect]
     Active Substance: NIRAPARIB
     Indication: OVARIAN CANCER
     Dosage: 300 MG, QD
     Dates: start: 202005

REACTIONS (8)
  - Ill-defined disorder [Unknown]
  - Fatigue [Unknown]
  - Heart rate increased [Unknown]
  - Blood pressure increased [Unknown]
  - Headache [Unknown]
  - Pruritus [Unknown]
  - Insurance issue [Unknown]
  - Product dose omission issue [Unknown]
